FAERS Safety Report 5094294-X (Version None)
Quarter: 2006Q3

REPORT INFORMATION
  Report Type: 
  Country: None (occurrence: None)
  Receive Date: 20060831
  Receipt Date: 20060828
  Transmission Date: 20061208
  Serious: Yes (Other)
  Sender: FDA-Public Use
  Company Number: US-ALLERGAN-0604418US

PATIENT
  Sex: Female

DRUGS (5)
  1. RESTASIS [Suspect]
     Indication: POSTOPERATIVE CARE
     Route: 047
     Dates: start: 20040901
  2. PRED FORTE[R] [Concomitant]
     Indication: DRUG USE FOR UNKNOWN INDICATION
     Route: 047
  3. TIMOPTIC [Concomitant]
     Indication: DRUG USE FOR UNKNOWN INDICATION
  4. LASIX                              /00032601/ [Concomitant]
     Indication: DRUG USE FOR UNKNOWN INDICATION
  5. CORDARONE /00133102/ [Concomitant]
     Indication: DRUG USE FOR UNKNOWN INDICATION

REACTIONS (1)
  - VISUAL ACUITY REDUCED [None]
